FAERS Safety Report 9372813 (Version 3)
Quarter: 2013Q3

REPORT INFORMATION
  Report Type: Report from Study
  Country: JP (occurrence: JP)
  Receive Date: 20130627
  Receipt Date: 20130830
  Transmission Date: 20140515
  Serious: Yes (Hospitalization)
  Sender: FDA-Public Use
  Company Number: JP-ABBOTT-13P-087-1107165-00

PATIENT
  Age: 73 Year
  Sex: Male

DRUGS (6)
  1. LEUPRORELIN ACETATE [Suspect]
     Indication: PROSTATE CANCER
     Route: 058
     Dates: start: 20120912
  2. ARTANE [Concomitant]
     Indication: PARKINSON^S DISEASE
     Route: 048
  3. DEPAKENE-R [Concomitant]
     Indication: PARKINSON^S DISEASE
     Route: 048
  4. MINIPLANOR [Concomitant]
     Indication: HYPERURICAEMIA
     Route: 048
  5. TRICOR [Concomitant]
     Indication: DYSLIPIDAEMIA
     Route: 048
  6. INTAL [Concomitant]
     Indication: CONJUNCTIVITIS
     Route: 047

REACTIONS (1)
  - Pulmonary infarction [Not Recovered/Not Resolved]
